FAERS Safety Report 7720635-8 (Version None)
Quarter: 2011Q3

REPORT INFORMATION
  Report Type: 
  Country: None (occurrence: None)
  Receive Date: 20110825
  Receipt Date: 20110812
  Transmission Date: 20111222
  Serious: Yes (Other)
  Sender: FDA-Public Use
  Company Number: US-2011-10584

PATIENT
  Sex: Female

DRUGS (11)
  1. DIOVAN [Concomitant]
  2. OPC-41061 (TOLVAPTAN) TABLET, 15MG MILLIGRAM(S) [Suspect]
     Indication: CONGENITAL CYSTIC KIDNEY DISEASE
     Dosage: 60 MG MILLIGRAM(S), DAILY DOSE, ORAL
     Route: 048
     Dates: start: 20110323, end: 20110807
  3. CALCIUM CARBONATE [Concomitant]
  4. ACETAMINOPHEN [Concomitant]
  5. IUD NOS (INTRAUTERINE CONTRACEPTIVE DEVICE) [Concomitant]
  6. ASCORBIC ACID [Concomitant]
  7. FLONASE [Concomitant]
  8. LOVAZA [Concomitant]
  9. METHOCARBAMOL [Concomitant]
  10. VITAMIN D [Concomitant]
  11. GLUCOSAMINE + CHONDROITIN (CHONDROITIN SULFATE, GLUCOSAMINE) [Concomitant]

REACTIONS (5)
  - PAIN [None]
  - HEADACHE [None]
  - ARTHRALGIA [None]
  - CEREBROVASCULAR ACCIDENT [None]
  - NECK PAIN [None]
